FAERS Safety Report 23382366 (Version 1)
Quarter: 2024Q1

REPORT INFORMATION
  Report Type: Spontaneous
  Country: US (occurrence: US)
  Receive Date: 20240109
  Receipt Date: 20240109
  Transmission Date: 20240409
  Serious: No
  Sender: FDA-Public Use
  Company Number: US-SIGMAPHARM LABORATORIES, LLC-2023SIG00041

PATIENT
  Age: 66 Year
  Sex: Female
  Weight: 67.12 kg

DRUGS (3)
  1. LIOTHYRONINE SODIUM [Suspect]
     Active Substance: LIOTHYRONINE SODIUM
     Indication: Hypothyroidism
     Dosage: 5 MCG, ONCE IN THE MORNING EACH DAY
     Route: 048
     Dates: start: 202302, end: 2023
  2. LEVOTHYROXINE [Concomitant]
     Active Substance: LEVOTHYROXINE
     Dosage: UNK
  3. UNSPECIFIED INGREDIENT [Concomitant]
     Active Substance: UNSPECIFIED INGREDIENT

REACTIONS (11)
  - Gastrointestinal bacterial overgrowth [Recovering/Resolving]
  - Abdominal distension [Recovering/Resolving]
  - Abdominal discomfort [Recovering/Resolving]
  - Dizziness [Recovered/Resolved]
  - Eructation [Recovering/Resolving]
  - Abdominal rigidity [Recovering/Resolving]
  - Reaction to excipient [Recovered/Resolved]
  - Middle insomnia [Recovering/Resolving]
  - Asthenia [Recovered/Resolved]
  - Abdominal pain [Recovering/Resolving]
  - Fatigue [Recovering/Resolving]

NARRATIVE: CASE EVENT DATE: 20230301
